FAERS Safety Report 20915870 (Version 1)
Quarter: 2022Q2

REPORT INFORMATION
  Report Type: Spontaneous
  Country: US (occurrence: US)
  Receive Date: 20220604
  Receipt Date: 20220604
  Transmission Date: 20220721
  Serious: No
  Sender: FDA-Public Use
  Company Number: US-SA-SAC20220531000534

PATIENT
  Sex: Male

DRUGS (15)
  1. DUPIXENT [Suspect]
     Active Substance: DUPILUMAB
     Indication: Asthma
     Dosage: 200 MG, QOW
     Route: 058
     Dates: start: 20210309
  2. DUPIXENT [Suspect]
     Active Substance: DUPILUMAB
     Dosage: 200MG
  3. ASPIRIN\HYDROCODONE BITARTRATE [Concomitant]
     Active Substance: ASPIRIN\HYDROCODONE BITARTRATE
  4. ADVAIR HFA [Concomitant]
     Active Substance: FLUTICASONE PROPIONATE\SALMETEROL XINAFOATE
  5. BENZONATATE [Concomitant]
     Active Substance: BENZONATATE
  6. DALIRESP [Concomitant]
     Active Substance: ROFLUMILAST
  7. IPRATROPIUM [Concomitant]
     Active Substance: IPRATROPIUM
  8. OMEPRAZOLE [Concomitant]
     Active Substance: OMEPRAZOLE
  9. SPIRIVA [TIOTROPIUM BROMIDE] [Concomitant]
  10. TRAZODONE [Concomitant]
     Active Substance: TRAZODONE HYDROCHLORIDE
  11. ZOFRAN [Concomitant]
     Active Substance: ONDANSETRON HYDROCHLORIDE
  12. ALBUTEROL [Concomitant]
     Active Substance: ALBUTEROL
  13. FLUTICASONE [Concomitant]
     Active Substance: FLUTICASONE
  14. MONTELUKAST [Concomitant]
     Active Substance: MONTELUKAST SODIUM
  15. PREDNISONE [Concomitant]
     Active Substance: PREDNISONE

REACTIONS (1)
  - Asthma [Not Recovered/Not Resolved]
